FAERS Safety Report 7555550-6 (Version None)
Quarter: 2011Q2

REPORT INFORMATION
  Report Type: 
  Country: None (occurrence: None)
  Receive Date: 20110617
  Receipt Date: 20051010
  Transmission Date: 20111010
  Serious: Yes (Death, Hospitalization)
  Sender: FDA-Public Use
  Company Number: PHNU2005DE03243

PATIENT
  Sex: Female
  Weight: 81 kg

DRUGS (4)
  1. DIOVAN [Suspect]
     Indication: HYPERTENSION
     Dates: start: 20030320
  2. VERAPAMIL [Concomitant]
     Dosage: 120 MG, QD
  3. AMADOL [Concomitant]
     Dosage: 100 MG, BID
  4. TRI-THIAZID [Concomitant]
     Dosage: UNK, QD

REACTIONS (23)
  - OVARIAN CANCER [None]
  - URINARY TRACT INFECTION [None]
  - NAUSEA [None]
  - SLEEP DISORDER [None]
  - RECTAL CANCER [None]
  - BREAST CANCER [None]
  - DEEP VEIN THROMBOSIS [None]
  - ABDOMINAL PAIN [None]
  - DYSPNOEA [None]
  - HELICOBACTER INFECTION [None]
  - GENERAL PHYSICAL HEALTH DETERIORATION [None]
  - NOCTURIA [None]
  - DUODENAL ULCER [None]
  - DRY SKIN [None]
  - CACHEXIA [None]
  - HEPATIC CANCER METASTATIC [None]
  - GASTRITIS [None]
  - LUNG NEOPLASM MALIGNANT [None]
  - DECREASED APPETITE [None]
  - PLEURAL EFFUSION [None]
  - MALIGNANT PERITONEAL NEOPLASM [None]
  - OEDEMA PERIPHERAL [None]
  - OBESITY [None]
